FAERS Safety Report 8347883-0 (Version None)
Quarter: 2012Q2

REPORT INFORMATION
  Report Type: 
  Country: None (occurrence: None)
  Receive Date: 20120509
  Receipt Date: 20120503
  Transmission Date: 20120825
  Serious: Yes (Disabling, Other)
  Sender: FDA-Public Use
  Company Number: SE-BAYER-2012-043336

PATIENT
  Sex: Female

DRUGS (6)
  1. NORFLOXACIN [Suspect]
     Indication: DIVERTICULITIS
     Dosage: UNK
     Route: 048
     Dates: start: 20030601
  2. VITAMIN TAB [Concomitant]
  3. MEDICATION FOR ASTHMA [Concomitant]
     Indication: ASTHMA
  4. AVELOX [Suspect]
     Indication: RESPIRATORY TRACT INFECTION
     Dosage: UNK
     Route: 048
     Dates: start: 20030301
  5. MINERALS NOS [Concomitant]
  6. CIPROFLOXACIN HCL [Suspect]
     Indication: WOUND INFECTION
     Dosage: UNK
     Route: 048
     Dates: start: 20020901

REACTIONS (4)
  - GAIT DISTURBANCE [None]
  - BURSITIS [None]
  - INFECTIVE TENOSYNOVITIS [None]
  - TENDON DISORDER [None]
